FAERS Safety Report 5233130-5 (Version None)
Quarter: 2007Q1

REPORT INFORMATION
  Report Type: 
  Country: None (occurrence: None)
  Receive Date: 20061204
  Receipt Date: 20060801
  Transmission Date: 20070707
  Serious: No
  Sender: FDA-Public Use
  Company Number: 2006-BP-05188BP

PATIENT
  Sex: Male

DRUGS (16)
  1. SPIRIVA [Suspect]
     Indication: ASTHMA
     Dosage: 18 MCG (18 MCG,1 IN 1 D), IH
     Route: 055
  2. SPIRIVA [Suspect]
  3. SPIRIVA [Suspect]
  4. COMBIVENT (COMBIVENT/01261001/) [Concomitant]
  5. SYNTHROID [Concomitant]
  6. ASPIRIN [Concomitant]
  7. IBUPROFEN [Concomitant]
  8. NASALCROM [Concomitant]
  9. DOXAZOSIN (DOXAZOSIN) [Concomitant]
  10. NIACIN (NCOTINIC ACID) [Concomitant]
  11. CARDURA [Concomitant]
  12. MULTIVITAMIN + MNERALS (ALL OTHER THERAPEUTIC PRODUCTS) [Concomitant]
  13. SAW PALMETTO (SERENOA REPENS) [Concomitant]
  14. CALTRATE (CALCIUM CARBONATE) [Concomitant]
  15. BENADRYL (ALL OTHER THERAPEUTIC PRODUCTS) [Concomitant]
  16. ALBUTEROL [Concomitant]

REACTIONS (1)
  - DRUG INEFFECTIVE [None]
